FAERS Safety Report 5645585-2 (Version None)
Quarter: 2008Q1

REPORT INFORMATION
  Report Type: 
  Country: None (occurrence: None)
  Receive Date: 20080229
  Receipt Date: 20080214
  Transmission Date: 20080703
  Serious: Yes (Other)
  Sender: FDA-Public Use
  Company Number: US-BAYER-200813944NA

PATIENT
  Sex: Male

DRUGS (7)
  1. MAGNEVIST [Suspect]
     Indication: NUCLEAR MAGNETIC RESONANCE IMAGING
     Route: 042
     Dates: start: 20060811, end: 20060811
  2. MAGNEVIST [Suspect]
     Route: 042
     Dates: start: 20060813, end: 20060813
  3. MAGNEVIST [Suspect]
     Route: 042
     Dates: start: 20061227, end: 20061227
  4. MAGNEVIST [Suspect]
     Route: 042
     Dates: start: 20061228, end: 20061228
  5. MAGNEVIST [Suspect]
     Route: 042
     Dates: start: 20070103, end: 20070103
  6. MAGNEVIST [Suspect]
     Route: 042
     Dates: start: 20070118, end: 20070118
  7. MAGNEVIST [Suspect]
     Route: 042
     Dates: start: 20070118, end: 20070118

REACTIONS (12)
  - ASTHENIA [None]
  - BACK PAIN [None]
  - GAIT DISTURBANCE [None]
  - MUSCULOSKELETAL DISCOMFORT [None]
  - MUSCULOSKELETAL STIFFNESS [None]
  - NEPHROGENIC SYSTEMIC FIBROSIS [None]
  - PRURITUS GENERALISED [None]
  - SCAR [None]
  - SENSORY LOSS [None]
  - SKIN DISCOLOURATION [None]
  - SKIN TIGHTNESS [None]
  - WALKING AID USER [None]
